FAERS Safety Report 23827647 (Version 1)
Quarter: 2024Q2

REPORT INFORMATION
  Report Type: Report from Study
  Country: US (occurrence: US)
  Receive Date: 20240507
  Receipt Date: 20240507
  Transmission Date: 20240716
  Serious: Yes (Hospitalization)
  Sender: FDA-Public Use
  Company Number: US-BAUSCH-BL-2023-000732

PATIENT
  Age: 57 Year
  Sex: Female

DRUGS (2)
  1. XIFAXAN [Suspect]
     Active Substance: RIFAXIMIN
     Indication: Hepatic encephalopathy
     Dosage: DURATION AT TIME OF INITIAL REPORT: 03 MONTHS
     Route: 048
     Dates: start: 202210, end: 2023
  2. XIFAXAN [Suspect]
     Active Substance: RIFAXIMIN
     Dosage: DURATION AT TIME OF REPORT OF VERSION 01: 13 MONTHS
     Route: 048
     Dates: start: 202305

REACTIONS (4)
  - Gastric varices haemorrhage [Unknown]
  - Ammonia increased [Not Recovered/Not Resolved]
  - Haemoglobin decreased [Unknown]
  - Treatment noncompliance [Unknown]

NARRATIVE: CASE EVENT DATE: 20221226
